FAERS Safety Report 7252036 (Version 3)
Quarter: 2013Q4

REPORT INFORMATION
  Report Type: Report from Study
  Country: US (occurrence: US)
  Receive Date: 20100121
  Receipt Date: 20131003
  Transmission Date: 20140711
  Serious: Yes (Hospitalization, Other)
  Sender: FDA-Public Use
  Company Number: US-AMGEN-US385809

PATIENT
  Age: 39 Year
  Sex: Female
  Weight: 75.4 kg

DRUGS (19)
  1. ETANERCEPT [Suspect]
     Indication: RHEUMATOID ARTHRITIS
     Dosage: 50 MG, QWK
     Route: 065
     Dates: start: 20090704, end: 20091123
  2. CAFFEINE [Concomitant]
     Dosage: UNK UNK, Q3WK
     Route: 048
     Dates: start: 20090520, end: 20091224
  3. PRENATAL VITAMINS [Concomitant]
     Dosage: UNK UNK, QD
     Route: 048
     Dates: start: 20090520, end: 20091224
  4. PREDNISONE [Concomitant]
     Indication: RHEUMATOID ARTHRITIS
     Dosage: 5 MG, QD
     Route: 048
     Dates: start: 20090520, end: 20091224
  5. VIVELLE [Concomitant]
     Dosage: UNK UNK, BID
     Route: 062
     Dates: start: 20090520, end: 20090729
  6. PROGESTERONE [Concomitant]
     Dosage: 100 MG, QD
     Route: 050
     Dates: start: 20090531, end: 20090812
  7. TYLENOL EXTRA STRENGTH [Concomitant]
     Indication: ARTHRALGIA
     Dosage: UNK UNK, QMO
     Route: 048
     Dates: start: 20090601, end: 20090821
  8. TYLENOL EXTRA STRENGTH [Concomitant]
     Indication: HEADACHE
  9. TUMS [Concomitant]
     Indication: DYSPEPSIA
     Dosage: UNK UNK, AS NECESSARY
     Route: 048
     Dates: start: 20090701, end: 20091228
  10. TUMS [Concomitant]
     Indication: ABDOMINAL DISCOMFORT
  11. FIORICET [Concomitant]
     Indication: MIGRAINE
     Dosage: UNK UNK, QD
     Route: 048
     Dates: start: 20090901, end: 20091013
  12. PERCOCET [Concomitant]
     Indication: MIGRAINE
     Dosage: UNK UNK, QD
     Route: 048
     Dates: start: 20091014, end: 20091209
  13. PHENERGAN [Concomitant]
     Indication: NAUSEA
     Dosage: 25 MG, QD
     Route: 048
     Dates: start: 20091012, end: 20091209
  14. PHENERGAN [Concomitant]
     Indication: MIGRAINE
  15. INFLUENZA VACCINE [Concomitant]
     Indication: INFLUENZA
     Dosage: UNK UNK, QD
     Route: 050
     Dates: start: 20090928, end: 20090928
  16. BABY ASPIRIN [Concomitant]
     Indication: PLACENTAL DISORDER
     Dosage: UNK UNK, QD
     Route: 048
     Dates: start: 20090902, end: 20091224
  17. PRILOSEC [Concomitant]
     Indication: GASTROOESOPHAGEAL REFLUX DISEASE
     Dosage: UNK UNK, QD
     Route: 048
     Dates: start: 20091008, end: 20091224
  18. DEMEROL [Concomitant]
     Indication: MIGRAINE
     Dosage: 75 MG, QD
     Route: 050
     Dates: start: 20091014, end: 20091209
  19. TYLENOL COLD [Concomitant]
     Indication: NASOPHARYNGITIS
     Dosage: UNK UNK, QD
     Route: 048
     Dates: start: 20091015, end: 20091015

REACTIONS (3)
  - Premature rupture of membranes [Recovered/Resolved]
  - Premature delivery [Recovered/Resolved]
  - Migraine [Recovered/Resolved]
